FAERS Safety Report 9671888 (Version 2)
Quarter: 2013Q4

REPORT INFORMATION
  Report Type: Report from Study
  Country: BR (occurrence: BR)
  Receive Date: 20131106
  Receipt Date: 20131106
  Transmission Date: 20140711
  Serious: Yes (Death, Hospitalization, Other)
  Sender: FDA-Public Use
  Company Number: BR-ABBVIE-13P-020-1095386-00

PATIENT
  Age: 21 Year
  Sex: Female

DRUGS (5)
  1. HUMIRA [Suspect]
     Indication: JUVENILE IDIOPATHIC ARTHRITIS
     Route: 058
  2. NIMESULIDE [Suspect]
     Indication: PRODUCT USED FOR UNKNOWN INDICATION
  3. OMEPRAZOLE [Suspect]
     Indication: GASTRIC DISORDER
  4. OMEPRAZOLE [Suspect]
     Indication: PROPHYLAXIS
  5. PREDNISONE [Suspect]
     Indication: PRODUCT USED FOR UNKNOWN INDICATION

REACTIONS (13)
  - Hepatic cirrhosis [Fatal]
  - Hepatic haemorrhage [Unknown]
  - Abdominal pain upper [Unknown]
  - Unevaluable event [Unknown]
  - Weight decreased [Unknown]
  - Hypophagia [Unknown]
  - Vomiting [Unknown]
  - Ocular icterus [Unknown]
  - Localised oedema [Unknown]
  - Asthenia [Unknown]
  - Lung disorder [Unknown]
  - Liver disorder [Unknown]
  - Spleen disorder [Unknown]
